FAERS Safety Report 20769872 (Version 3)
Quarter: 2022Q2

REPORT INFORMATION
  Report Type: Report from Study
  Country: JP (occurrence: None)
  Receive Date: 20220429
  Receipt Date: 20220615
  Transmission Date: 20220720
  Serious: Yes (Death, Hospitalization)
  Sender: FDA-Public Use
  Company Number: 2021A186144

PATIENT
  Age: 88 Year
  Sex: Male
  Weight: 50 kg

DRUGS (11)
  1. BRILINTA [Suspect]
     Active Substance: TICAGRELOR
     Indication: Angina unstable
     Route: 048
     Dates: start: 20200211, end: 20200306
  2. CARVEDILOL [Concomitant]
     Active Substance: CARVEDILOL
     Route: 048
     Dates: end: 20200223
  3. BISOPROLOL [Concomitant]
     Active Substance: BISOPROLOL
     Route: 062
     Dates: start: 20200229, end: 20200302
  4. LANSOPRAZOLE [Concomitant]
     Active Substance: LANSOPRAZOLE
     Indication: Prophylaxis
     Route: 048
     Dates: start: 20200211, end: 20200319
  5. ENALAPRIL MALEATE [Concomitant]
     Active Substance: ENALAPRIL MALEATE
     Route: 048
     Dates: end: 20200223
  6. FEBUXOSTAT [Concomitant]
     Active Substance: FEBUXOSTAT
     Route: 048
     Dates: end: 20200223
  7. ICOSAPENT ETHYL [Concomitant]
     Active Substance: ICOSAPENT ETHYL
     Route: 048
     Dates: end: 20200317
  8. NICORANDIL [Concomitant]
     Active Substance: NICORANDIL
     Indication: Angina unstable
     Route: 048
     Dates: end: 20200319
  9. LINAGLIPTIN [Concomitant]
     Active Substance: LINAGLIPTIN
     Route: 048
     Dates: end: 20200317
  10. TULOBUTEROL [Concomitant]
     Active Substance: TULOBUTEROL
     Route: 062
     Dates: start: 20200218, end: 20200303
  11. IVABRADINE HYDROCHLORIDE [Concomitant]
     Active Substance: IVABRADINE HYDROCHLORIDE
     Route: 048
     Dates: start: 20200301, end: 20200319

REACTIONS (7)
  - Pneumonia [Fatal]
  - Cardiac failure [Fatal]
  - Pulmonary alveolar haemorrhage [Fatal]
  - Dyspnoea [Unknown]
  - Anaemia [Unknown]
  - Platelet count decreased [Unknown]
  - Respiratory tract haemorrhage [Unknown]

NARRATIVE: CASE EVENT DATE: 20200101
